FAERS Safety Report 16694011 (Version 2)
Quarter: 2021Q3

REPORT INFORMATION
  Report Type: Spontaneous
  Country: US (occurrence: US)
  Receive Date: 20190812
  Receipt Date: 20210714
  Transmission Date: 20211014
  Serious: No
  Sender: FDA-Public Use
  Company Number: US-SA-2019SA219937

PATIENT
  Age: 40 Year
  Sex: Female

DRUGS (1)
  1. DUPIXENT [Suspect]
     Active Substance: DUPILUMAB
     Indication: DERMATITIS ATOPIC
     Dosage: 200 MG, QOW
     Route: 058
     Dates: start: 201810

REACTIONS (5)
  - Genital herpes [Unknown]
  - Product use issue [Unknown]
  - Pruritus [Unknown]
  - Pain [Unknown]
  - Burning sensation [Unknown]

NARRATIVE: CASE EVENT DATE: 202106
